FAERS Safety Report 4501853-9 (Version None)
Quarter: 2004Q4

REPORT INFORMATION
  Report Type: 
  Country: None (occurrence: None)
  Receive Date: 20041116
  Receipt Date: 20041108
  Transmission Date: 20050328
  Serious: Yes (Hospitalization)
  Sender: FDA-Public Use
  Company Number: US-JNJFOC-20041102204

PATIENT
  Sex: Male

DRUGS (10)
  1. DURAGESIC [Suspect]
     Route: 062
  2. DURAGESIC [Suspect]
     Route: 062
  3. DURAGESIC [Suspect]
     Route: 062
  4. MORPHINE [Concomitant]
     Route: 049
  5. XANAX [Concomitant]
     Route: 049
  6. GLIPIZIDE [Concomitant]
     Route: 049
  7. ZESTRIL [Concomitant]
     Route: 049
  8. TRAZODONE HCL [Concomitant]
     Route: 049
  9. TRISON [Concomitant]
     Route: 049
  10. LIPITOR [Concomitant]
     Route: 049

REACTIONS (6)
  - ASTHENIA [None]
  - DIZZINESS [None]
  - FEELING ABNORMAL [None]
  - NAUSEA [None]
  - NERVOUSNESS [None]
  - TREMOR [None]
